FAERS Safety Report 11465221 (Version 1)
Quarter: 2015Q3

REPORT INFORMATION
  Report Type: Spontaneous
  Country: GB (occurrence: GB)
  Receive Date: 20150907
  Receipt Date: 20150907
  Transmission Date: 20151125
  Serious: Yes (Other)
  Sender: FDA-Public Use
  Company Number: GB-ASTRAZENECA-2015SE85144

PATIENT
  Sex: Male

DRUGS (7)
  1. GABAPENTIN. [Concomitant]
     Active Substance: GABAPENTIN
  2. LOSEC [Suspect]
     Active Substance: OMEPRAZOLE
     Indication: GASTROOESOPHAGEAL REFLUX DISEASE
     Route: 048
  3. DICLOFENAC [Concomitant]
     Active Substance: DICLOFENAC
  4. SLEEPING TABLETS [Concomitant]
  5. ST. JOHN^S WORT [Concomitant]
     Active Substance: ST. JOHN^S WORT
  6. TRAMADOL. [Concomitant]
     Active Substance: TRAMADOL
  7. DEVILS CLAW [Concomitant]
     Active Substance: HERBS\UNSPECIFIED INGREDIENT

REACTIONS (17)
  - Change of bowel habit [Unknown]
  - Vomiting [Unknown]
  - Dyspepsia [Unknown]
  - Stomach mass [Unknown]
  - Myalgia [Unknown]
  - Dry mouth [Unknown]
  - Bone disorder [Unknown]
  - Muscle spasms [Unknown]
  - Activities of daily living impaired [Unknown]
  - Sleep apnoea syndrome [Unknown]
  - Limb injury [Unknown]
  - Hyperhidrosis [Unknown]
  - Muscular weakness [Unknown]
  - Depression [Unknown]
  - Neoplasm malignant [Unknown]
  - Hernia [Unknown]
  - Dysgeusia [Unknown]

NARRATIVE: CASE EVENT DATE: 2013
